FAERS Safety Report 5174546-5 (Version None)
Quarter: 2006Q4

REPORT INFORMATION
  Report Type: 
  Country: None (occurrence: None)
  Receive Date: 20061214
  Receipt Date: 20060530
  Transmission Date: 20070319
  Serious: No
  Sender: FDA-Public Use
  Company Number: US-AMGEN-KDL181129

PATIENT
  Sex: Male
  Weight: 95.8 kg

DRUGS (4)
  1. ENBREL [Suspect]
     Indication: PSORIATIC ARTHROPATHY
     Route: 058
     Dates: start: 20030801
  2. ACETYLSALICYLIC ACID SRT [Concomitant]
  3. LIPITOR [Concomitant]
  4. LOPRESSOR [Concomitant]

REACTIONS (2)
  - ARTHROPOD BITE [None]
  - SKIN REACTION [None]
